FAERS Safety Report 25542561 (Version 1)
Quarter: 2025Q3

REPORT INFORMATION
  Report Type: Spontaneous
  Country: IN (occurrence: IN)
  Receive Date: 20250711
  Receipt Date: 20250711
  Transmission Date: 20251020
  Serious: Yes (Death, Hospitalization, Other)
  Sender: ASTELLAS
  Company Number: IN-ASTELLAS-2025-AER-037792

PATIENT
  Age: 73 Year
  Sex: Male

DRUGS (3)
  1. TACROLIMUS [Suspect]
     Active Substance: TACROLIMUS
     Indication: Renal transplant
     Route: 065
  2. PREDNISOLONE [Concomitant]
     Active Substance: PREDNISOLONE
     Indication: Renal transplant
     Route: 065
  3. MYCOPHENOLIC ACID [Concomitant]
     Active Substance: MYCOPHENOLIC ACID
     Indication: Renal transplant
     Route: 065

REACTIONS (4)
  - Pneumonia fungal [Fatal]
  - Respiratory distress [Fatal]
  - Disease recurrence [Fatal]
  - Urinary tract infection [Unknown]
